FAERS Safety Report 9406892 (Version 3)
Quarter: 2013Q3

REPORT INFORMATION
  Report Type: Report from Study
  Country: BR (occurrence: BR)
  Receive Date: 20130718
  Receipt Date: 20130814
  Transmission Date: 20140515
  Serious: Yes (Other)
  Sender: FDA-Public Use
  Company Number: PHHY2013BR075961

PATIENT
  Age: 57 Year
  Sex: Female

DRUGS (4)
  1. DIOVAN [Suspect]
     Indication: HYPERTENSION
     Dosage: 640 MG, DAILY
     Route: 048
  2. VASOPRIL                                /BRA/ [Concomitant]
     Indication: HYPERTENSION
     Dosage: 20 MG, DAILY
     Route: 048
  3. LASIX [Concomitant]
     Indication: HYPERTENSION
     Dosage: 80 MG, DAILY
     Dates: start: 201201
  4. LASIX [Concomitant]
     Indication: SWELLING

REACTIONS (10)
  - Cerebrovascular accident [Unknown]
  - Blood pressure inadequately controlled [Unknown]
  - Polyuria [Unknown]
  - Pain in extremity [Not Recovered/Not Resolved]
  - Muscular weakness [Not Recovered/Not Resolved]
  - Dry skin [Unknown]
  - Vomiting [Not Recovered/Not Resolved]
  - Pain [Not Recovered/Not Resolved]
  - Local swelling [Unknown]
  - Cough [Not Recovered/Not Resolved]
